FAERS Safety Report 8482792-8 (Version None)
Quarter: 2012Q3

REPORT INFORMATION
  Report Type: 
  Country: None (occurrence: None)
  Receive Date: 20120702
  Receipt Date: 20120627
  Transmission Date: 20120928
  Serious: Yes (Other)
  Sender: FDA-Public Use
  Company Number: PHHY2012FR055442

PATIENT
  Age: 79 Year
  Sex: Male

DRUGS (13)
  1. SIROLIMUS [Interacting]
     Indication: IMMUNOSUPPRESSION
     Dosage: UNK
     Dates: start: 20070501, end: 20070801
  2. DARBEPOETIN ALFA [Concomitant]
  3. AMILORIDE HYDROCHLORIDE [Concomitant]
  4. NIFEDIPINE [Concomitant]
  5. RABEPRAZOLE SODIUM [Concomitant]
  6. ATENOLOL [Concomitant]
  7. ASPIRIN [Concomitant]
  8. FUROSEMIDE [Concomitant]
  9. ALLOPURINOL [Concomitant]
  10. LOSARTAN POTASSIUM [Concomitant]
  11. REPAGLINIDE [Concomitant]
  12. ATORVASTATIN [Suspect]
  13. TAMSULOSIN HCL [Concomitant]

REACTIONS (6)
  - PNEUMONITIS [None]
  - COUGH [None]
  - BRONCHIECTASIS [None]
  - DYSPNOEA EXERTIONAL [None]
  - DRUG INTERACTION [None]
  - ALVEOLITIS [None]
